FAERS Safety Report 22535160 (Version 1)
Quarter: 2023Q2

REPORT INFORMATION
  Report Type: Spontaneous
  Country: US (occurrence: None)
  Receive Date: 20230607
  Receipt Date: 20230607
  Transmission Date: 20230722
  Serious: Yes (Hospitalization, Other)
  Sender: FDA-Public Use
  Company Number: None

PATIENT
  Age: 80 Year
  Sex: Male
  Weight: 95.85 kg

DRUGS (12)
  1. ALPRAZOLAM [Suspect]
     Active Substance: ALPRAZOLAM
     Indication: Anxiety
     Dosage: 0.125 MG AS NEEDED ORAL?
     Route: 048
     Dates: start: 20230216, end: 20230303
  2. HALOPERIDOL [Concomitant]
     Active Substance: HALOPERIDOL
  3. OXYCODONE [Concomitant]
     Active Substance: OXYCODONE
  4. AMLODIPINE BESYLATE [Concomitant]
     Active Substance: AMLODIPINE BESYLATE
  5. BENAZEPRIL [Concomitant]
     Active Substance: BENAZEPRIL HYDROCHLORIDE
  6. Hydralazine 10 mg [Concomitant]
  7. HYDROCHLOROTHIAZIDE [Concomitant]
     Active Substance: HYDROCHLOROTHIAZIDE
  8. Isosorbide Mononitrate ER 30 mg [Concomitant]
  9. MIRTAZAPINE [Concomitant]
     Active Substance: MIRTAZAPINE
  10. Propranolol 30 mg [Concomitant]
  11. QUETIAPINE [Suspect]
     Active Substance: QUETIAPINE
  12. DEVICE [Suspect]
     Active Substance: DEVICE

REACTIONS (4)
  - Drug hypersensitivity [None]
  - Mental status changes [None]
  - Sepsis [None]
  - Complication associated with device [None]

NARRATIVE: CASE EVENT DATE: 20230302
